FAERS Safety Report 9065637 (Version 1)
Quarter: 2013Q1

REPORT INFORMATION
  Report Type: Report from Study
  Country: US (occurrence: US)
  Receive Date: 20130130
  Receipt Date: 20130130
  Transmission Date: 20140127
  Serious: No
  Sender: FDA-Public Use
  Company Number: US-ABBOTT-12P-163-0976325-00

PATIENT
  Sex: Male

DRUGS (10)
  1. HUMIRA [Suspect]
     Indication: CROHN^S DISEASE
     Route: 058
     Dates: start: 201206
  2. ISENTRESS [Concomitant]
     Indication: PRODUCT USED FOR UNKNOWN INDICATION
  3. FLAGYL [Concomitant]
     Indication: PRODUCT USED FOR UNKNOWN INDICATION
  4. ZOLPIDEM TARTRATE [Concomitant]
     Indication: PRODUCT USED FOR UNKNOWN INDICATION
  5. LISINOPRIL [Concomitant]
     Indication: PRODUCT USED FOR UNKNOWN INDICATION
  6. SULFAMETHOXAZOLE TMP DS [Concomitant]
     Indication: PRODUCT USED FOR UNKNOWN INDICATION
  7. LEXAPRO [Concomitant]
     Indication: PRODUCT USED FOR UNKNOWN INDICATION
  8. EPZICOM [Concomitant]
     Indication: PRODUCT USED FOR UNKNOWN INDICATION
  9. VIREAD [Concomitant]
     Indication: PRODUCT USED FOR UNKNOWN INDICATION
  10. LIALDA DR [Concomitant]
     Indication: PRODUCT USED FOR UNKNOWN INDICATION

REACTIONS (2)
  - Decreased appetite [Unknown]
  - Blood pressure decreased [Unknown]
